FAERS Safety Report 5413292-7 (Version None)
Quarter: 2007Q3

REPORT INFORMATION
  Report Type: 
  Country: None (occurrence: None)
  Receive Date: 20070810
  Receipt Date: 20070801
  Transmission Date: 20080115
  Serious: Yes (Hospitalization, Other)
  Sender: FDA-Public Use
  Company Number: 07H-167-0312884-00

PATIENT
  Sex: Female
  Weight: 64 kg

DRUGS (14)
  1. ONDANSETRON [Suspect]
     Indication: DRUG USE FOR UNKNOWN INDICATION
     Dosage: 8 MG, 1 IN 1 D, INTRAVENOUS
     Route: 042
     Dates: start: 20070601, end: 20070604
  2. ONDANSETRON HCL [Suspect]
     Indication: DRUG USE FOR UNKNOWN INDICATION
     Dosage: 8 MG, 2 IN 1 D, ORAL
     Route: 048
     Dates: start: 20070531, end: 20070531
  3. DEXAMETHASONE TAB [Concomitant]
  4. DIAZEPAM [Concomitant]
  5. DOMPERIDONE (DOMPERIDONE) [Concomitant]
  6. FLUOROURACIL [Concomitant]
  7. FOLINIC ACID (FOLINIC ACID) [Concomitant]
  8. LACTULOSE [Concomitant]
  9. LOPERAMIDE HCL [Concomitant]
  10. LORAZEPAM [Concomitant]
  11. LOSARTAN POTASSIUM [Concomitant]
  12. OXALIPLATIN (OXALIPLATIN) [Concomitant]
  13. TRAMADOL HCL [Concomitant]
  14. XALIPRODEN (XALIPRODEN) [Concomitant]

REACTIONS (1)
  - TORSADE DE POINTES [None]
